FAERS Safety Report 4320257-5 (Version None)
Quarter: 2004Q1

REPORT INFORMATION
  Report Type: 
  Country: None (occurrence: None)
  Receive Date: 20040317
  Receipt Date: 20040304
  Transmission Date: 20041129
  Serious: Yes (Death, Life-Threatening, Hospitalization, Other)
  Sender: FDA-Public Use
  Company Number: 2004015576

PATIENT
  Age: 47 Year
  Sex: Female
  Weight: 55 kg

DRUGS (1)
  1. MAGNEX (CEFOPERAZONE, SULBACTAM) [Suspect]
     Indication: SEPSIS
     Dosage: 2 GRAM (BID), INTRAVENOUS
     Route: 042
     Dates: start: 20031128, end: 20031210

REACTIONS (4)
  - ANAL FISTULA [None]
  - ANASTOMOTIC LEAK [None]
  - DISSEMINATED INTRAVASCULAR COAGULATION [None]
  - THROMBOCYTOPENIA [None]
